FAERS Safety Report 13430169 (Version 3)
Quarter: 2017Q3

REPORT INFORMATION
  Report Type: Spontaneous
  Country: US (occurrence: US)
  Receive Date: 20170412
  Receipt Date: 20170802
  Transmission Date: 20171127
  Serious: No
  Sender: FDA-Public Use
  Company Number: US-009507513-1703USA014426

PATIENT
  Sex: Male

DRUGS (5)
  1. REMERON [Suspect]
     Active Substance: MIRTAZAPINE
     Indication: PRODUCT USED FOR UNKNOWN INDICATION
     Dosage: 15 MG, QD, STRENGTH: 15 MG
     Route: 048
  2. MIRTAZAPINE. [Suspect]
     Active Substance: MIRTAZAPINE
     Dosage: SPLIT TABLET TO ACHIEVE A 7.5MG PER DAY
     Route: 048
  3. MIRTAZAPINE. [Suspect]
     Active Substance: MIRTAZAPINE
     Dosage: 15 MG, QD
     Route: 048
  4. BUSPAR [Concomitant]
     Active Substance: BUSPIRONE HYDROCHLORIDE
  5. REMERON [Suspect]
     Active Substance: MIRTAZAPINE
     Dosage: SPLIT TABLET TO ACHIEVE A 7.5MG PER DAY
     Route: 048

REACTIONS (4)
  - Drug hypersensitivity [Recovered/Resolved]
  - Drug hypersensitivity [Not Recovered/Not Resolved]
  - Wrong technique in product usage process [Unknown]
  - Agitation [Not Recovered/Not Resolved]
